FAERS Safety Report 7927914-X (Version None)
Quarter: 2011Q4

REPORT INFORMATION
  Report Type: 
  Country: None (occurrence: None)
  Receive Date: 20111118
  Receipt Date: 20111114
  Transmission Date: 20120403
  Serious: Yes (Life-Threatening, Other)
  Sender: FDA-Public Use
  Company Number: DE-B.I. PHARMACEUTICALS,INC./RIDGEFIELD-2011-DE-06225DE

PATIENT
  Age: 69 Year
  Sex: Female

DRUGS (2)
  1. PRADAXA [Suspect]
     Indication: ATRIAL FIBRILLATION
     Dosage: 220 MG
  2. KEPPRA [Suspect]
     Indication: EPILEPSY
     Dosage: 2 G

REACTIONS (4)
  - CEREBRAL HAEMATOMA [None]
  - CEREBRAL HAEMORRHAGE [None]
  - GAMMA-GLUTAMYLTRANSFERASE INCREASED [None]
  - CEREBROVASCULAR ACCIDENT [None]
